FAERS Safety Report 15675564 (Version 2)
Quarter: 2019Q1

REPORT INFORMATION
  Report Type: Report from Study
  Country: US (occurrence: US)
  Receive Date: 20181130
  Receipt Date: 20190210
  Transmission Date: 20190417
  Serious: Yes (Other)
  Sender: FDA-Public Use
  Company Number: PHEH2018US046989

PATIENT
  Sex: Female

DRUGS (1)
  1. GILENYA [Suspect]
     Active Substance: FINGOLIMOD HYDROCHLORIDE
     Indication: RELAPSING MULTIPLE SCLEROSIS
     Dosage: 0.5 MG, QD
     Route: 048
     Dates: start: 20180802

REACTIONS (5)
  - Dysstasia [Unknown]
  - Multiple sclerosis relapse [Unknown]
  - Fatigue [Unknown]
  - Pain [Unknown]
  - Cognitive disorder [Unknown]
